FAERS Safety Report 4470177-0 (Version None)
Quarter: 2004Q3

REPORT INFORMATION
  Report Type: 
  Country: None (occurrence: None)
  Receive Date: 20040910
  Receipt Date: 20040804
  Transmission Date: 20050211
  Serious: No
  Sender: FDA-Public Use
  Company Number: 2004-00179

PATIENT
  Sex: Male

DRUGS (2)
  1. VELCADE [Suspect]
     Dosage: 1.30 MG/M2
  2. THALIDOMIDE [Concomitant]

REACTIONS (1)
  - INTERNATIONAL NORMALISED RATIO DECREASED [None]
